FAERS Safety Report 16051275 (Version 1)
Quarter: 2019Q1

REPORT INFORMATION
  Report Type: Spontaneous
  Country: US (occurrence: US)
  Receive Date: 20190308
  Receipt Date: 20190308
  Transmission Date: 20190418
  Serious: No
  Sender: FDA-Public Use
  Company Number: US-TEVA-2019-US-1012166

PATIENT
  Sex: Female

DRUGS (1)
  1. AZITHROMYCIN FOR ORAL SUSPENSION, USP [Suspect]
     Active Substance: AZITHROMYCIN
     Indication: STREPTOCOCCAL INFECTION
     Route: 065
     Dates: start: 20190207

REACTIONS (3)
  - Pyrexia [Unknown]
  - Product storage error [Unknown]
  - Drug ineffective [Unknown]

NARRATIVE: CASE EVENT DATE: 20190207
